FAERS Safety Report 6435567-5 (Version None)
Quarter: 2009Q4

REPORT INFORMATION
  Report Type: 
  Country: None (occurrence: None)
  Receive Date: 20091111
  Receipt Date: 20091104
  Transmission Date: 20100525
  Serious: Yes (Death)
  Sender: FDA-Public Use
  Company Number: GB-TEVA-214490ISR

PATIENT
  Age: 45 Year
  Sex: Female

DRUGS (7)
  1. AMITRIPTYLINE [Suspect]
  2. CODEINE [Suspect]
  3. TEMAZEPAM [Suspect]
  4. TRAMADOL HCL [Suspect]
  5. MORPHINE SULFATE [Suspect]
  6. OXYCODONE HCL [Suspect]
  7. ACETAMINOPHEN [Suspect]

REACTIONS (1)
  - DRUG TOXICITY [None]
